FAERS Safety Report 10709473 (Version 1)
Quarter: 2015Q1

REPORT INFORMATION
  Report Type: Spontaneous
  Country: US (occurrence: None)
  Receive Date: 20150113
  Receipt Date: 20150113
  Transmission Date: 20150721
  Serious: No
  Sender: FDA-Public Use
  Company Number: None

PATIENT
  Age: 56 Year
  Sex: Female
  Weight: 54.43 kg

DRUGS (3)
  1. DULOXETINE [Suspect]
     Active Substance: DULOXETINE
     Dosage: ONE
     Route: 048
     Dates: start: 20140109, end: 20140314
  2. DULOXETINE [Suspect]
     Active Substance: DULOXETINE
     Indication: FIBROMYALGIA
     Dosage: ONE
     Route: 048
     Dates: start: 20140109, end: 20140314
  3. DULOXETINE [Suspect]
     Active Substance: DULOXETINE
     Indication: ANXIETY
     Dosage: ONE
     Route: 048
     Dates: start: 20140109, end: 20140314

REACTIONS (6)
  - Product substitution issue [None]
  - Depression [None]
  - Disease recurrence [None]
  - Drug ineffective [None]
  - Fibromyalgia [None]
  - Anxiety [None]

NARRATIVE: CASE EVENT DATE: 20140109
